FAERS Safety Report 13757645 (Version 1)
Quarter: 2017Q3

REPORT INFORMATION
  Report Type: Report from Study
  Country: BR (occurrence: BR)
  Receive Date: 20170717
  Receipt Date: 20170717
  Transmission Date: 20171127
  Serious: Yes (Death, Life-Threatening, Other)
  Sender: FDA-Public Use
  Company Number: BR-ACCORD-053513

PATIENT
  Age: 59 Year
  Sex: Male

DRUGS (3)
  1. FOLINIC ACID [Suspect]
     Active Substance: LEUCOVORIN
     Indication: COLORECTAL CANCER STAGE III
     Dosage: WEEKLY AT WEEK 1, 2, 3, 4, 5 AND 6?EVERY 8 WEEKS
     Route: 040
  2. OXALIPLATIN. [Suspect]
     Active Substance: OXALIPLATIN
     Indication: COLORECTAL CANCER STAGE III
     Dosage: OVER 2 HOURS AT WEEK 1, 3 AND 5?EVERY 8 WEEKS
     Route: 042
  3. FLUOROURACIL. [Suspect]
     Active Substance: FLUOROURACIL
     Indication: COLORECTAL CANCER STAGE III
     Dosage: WEEKLY AT WEEK 1, 2, 3, 4, 5 AND 6?EVERY 8 WEEKS
     Route: 040

REACTIONS (3)
  - Neutropenia [Unknown]
  - Sepsis [Fatal]
  - Diarrhoea [Unknown]
